FAERS Safety Report 9290750 (Version 1)
Quarter: 2013Q2

REPORT INFORMATION
  Report Type: Spontaneous
  Country: US (occurrence: US)
  Receive Date: 20130515
  Receipt Date: 20130515
  Transmission Date: 20140414
  Serious: Yes (Other)
  Sender: FDA-Public Use
  Company Number: PHHY2013US047547

PATIENT
  Age: 43 Year
  Sex: Male

DRUGS (10)
  1. PYRIDOSTIGMINE [Suspect]
     Indication: MYASTHENIA GRAVIS
     Dosage: 60 MG, TID
     Route: 048
  2. PYRIDOSTIGMINE [Suspect]
     Dosage: 1.2 MG, UNK
  3. PYRIDOSTIGMINE [Suspect]
     Dosage: 2.4 MG, UNK
  4. PYRIDOSTIGMINE [Suspect]
     Dosage: 4.8 MG, UNK
  5. PYRIDOSTIGMINE [Suspect]
     Dosage: 9.6 MG, UNK
  6. PYRIDOSTIGMINE [Suspect]
     Dosage: 19.2 MG, UNK
  7. PYRIDOSTIGMINE [Suspect]
     Dosage: 38.4 MG, UNK
  8. PYRIDOSTIGMINE [Suspect]
  9. PYRIDOSTIGMINE [Suspect]
  10. PREDNISONE [Concomitant]
     Indication: MYASTHENIA GRAVIS
     Dosage: 10 MG, UNK

REACTIONS (4)
  - Hypersensitivity [Recovered/Resolved]
  - Pruritus [Recovered/Resolved]
  - Urticaria [Recovered/Resolved]
  - Dysphonia [Unknown]
